FAERS Safety Report 8885558 (Version 2)
Quarter: 2012Q4

REPORT INFORMATION
  Report Type: 
  Country: CA (occurrence: CA)
  Receive Date: 20121102
  Receipt Date: 20121205
  Transmission Date: 20130627
  Serious: Yes (Hospitalization, Other)
  Sender: FDA-Public Use
  Company Number: CA-AMGEN-CANSP2011027104

PATIENT
  Age: 71 Year
  Sex: Female
  Weight: 68 kg

DRUGS (14)
  1. ENBREL [Suspect]
     Indication: RHEUMATOID ARTHRITIS
     Dosage: 50 mg, qwk
     Dates: start: 20110404, end: 201201
  2. ALLOPURINOL                        /00003302/ [Concomitant]
     Dosage: 300 mg, qd
  3. ATENOLOL [Concomitant]
     Dosage: 25 mg, qd
  4. CALCIUM [Concomitant]
     Dosage: 500 mg, qd
  5. VITAMIN D3 [Concomitant]
     Dosage: 2000 IU, qd
  6. VITAMIN B12                        /00056201/ [Concomitant]
     Dosage: 1000 mug, qd
  7. DIGOXIN [Concomitant]
     Dosage: 0.25 mg, qd
  8. DOCUSATE SODIUM AND SENNA [Concomitant]
     Dosage: 100 mg, bid
  9. LANSOPRAZOLE ALMUS [Concomitant]
     Dosage: 30 mg, bid
  10. RAMIPRIL [Concomitant]
     Dosage: 5 mg, qd
  11. WARFARIN [Concomitant]
     Dosage: 5.5 mg, qd
  12. MORPHINE                           /00036302/ [Concomitant]
     Dosage: 60 mg, bid
  13. FUROSEMIDE [Concomitant]
     Dosage: 20 mg, bid
  14. PREDNISONE [Concomitant]
     Indication: RHEUMATOID ARTHRITIS
     Dosage: 10 mg, qd
     Route: 048

REACTIONS (2)
  - Amputation [Recovered/Resolved]
  - Localised infection [Recovered/Resolved]
